FAERS Safety Report 6704216-0 (Version None)
Quarter: 2010Q2

REPORT INFORMATION
  Report Type: 
  Country: None (occurrence: None)
  Receive Date: 20100430
  Receipt Date: 20100420
  Transmission Date: 20101027
  Serious: Yes (Hospitalization)
  Sender: FDA-Public Use
  Company Number: SA-WATSON-2010-05622

PATIENT
  Age: 63 Year
  Sex: Male

DRUGS (4)
  1. CIPROFLOXACIN HCL [Suspect]
     Indication: BONE TUBERCULOSIS
     Dosage: UNK
     Dates: start: 20030101
  2. ISONIAZID [Suspect]
     Indication: BONE TUBERCULOSIS
  3. ETHAMBUTOL HYDROCHLORIDE [Suspect]
     Indication: BONE TUBERCULOSIS
     Dosage: UNK
     Dates: start: 20030101
  4. PYRAZINAMIDE [Suspect]
     Indication: BONE TUBERCULOSIS
     Dosage: UNK
     Dates: start: 20030101

REACTIONS (1)
  - PARADOXICAL DRUG REACTION [None]
